FAERS Safety Report 21983562 (Version 1)
Quarter: 2023Q1

REPORT INFORMATION
  Report Type: Spontaneous
  Country: US (occurrence: US)
  Receive Date: 20230213
  Receipt Date: 20230213
  Transmission Date: 20230418
  Serious: No
  Sender: FDA-Public Use
  Company Number: US-002147023-NVSC2023US032004

PATIENT
  Sex: Female

DRUGS (2)
  1. COSENTYX [Suspect]
     Active Substance: SECUKINUMAB
     Indication: Product used for unknown indication
     Dosage: UNK
     Route: 065
  2. HUMIRA [Suspect]
     Active Substance: ADALIMUMAB
     Indication: Rheumatoid arthritis
     Dosage: 40/0.4 MG/ML (40 MG CITRATE FREE, 22/WEEKS)
     Route: 058
     Dates: start: 2018, end: 2021

REACTIONS (4)
  - Pain [Not Recovered/Not Resolved]
  - Rash [Unknown]
  - Hypersensitivity [Unknown]
  - Drug ineffective [Not Recovered/Not Resolved]
